FAERS Safety Report 10228104 (Version 1)
Quarter: 2014Q2

REPORT INFORMATION
  Report Type: Spontaneous
  Country: JP (occurrence: JP)
  Receive Date: 20140610
  Receipt Date: 20140610
  Transmission Date: 20141212
  Serious: Yes (Other)
  Sender: FDA-Public Use
  Company Number: PHHY2014JP067150

PATIENT
  Age: 68 Year
  Sex: Male

DRUGS (2)
  1. FOLINIC ACID [Suspect]
     Indication: ADENOCARCINOMA OF COLON
     Route: 048
  2. TEGAFUR W/URACIL [Suspect]
     Indication: ADENOCARCINOMA OF COLON

REACTIONS (7)
  - Pelvic mass [Unknown]
  - Metastases to rectum [Unknown]
  - Abdominal distension [Unknown]
  - Metastases to spleen [Unknown]
  - Metastases to liver [Unknown]
  - Anaemia [Unknown]
  - Conjunctival pallor [Unknown]
